FAERS Safety Report 16091147 (Version 2)
Quarter: 2019Q3

REPORT INFORMATION
  Report Type: Spontaneous
  Country: CA (occurrence: CA)
  Receive Date: 20190319
  Receipt Date: 20190828
  Transmission Date: 20191004
  Serious: Yes (Hospitalization, Other)
  Sender: FDA-Public Use
  Company Number: CA-ABBVIE-19K-028-2709089-00

PATIENT
  Age: 10 Year
  Sex: Male
  Weight: 27 kg

DRUGS (26)
  1. PREDNISONE. [Suspect]
     Active Substance: PREDNISONE
     Route: 065
  2. ATIVAN [Concomitant]
     Active Substance: LORAZEPAM
     Indication: FEAR OF INJECTION
  3. CEFPROZIL. [Concomitant]
     Active Substance: CEFPROZIL
     Indication: LYMPHADENITIS
  4. HUMIRA [Suspect]
     Active Substance: ADALIMUMAB
     Indication: CROHN^S DISEASE
     Route: 058
  5. AZATHIOPRINE. [Suspect]
     Active Substance: AZATHIOPRINE
     Indication: CROHN^S DISEASE
     Route: 048
  6. IRON [Suspect]
     Active Substance: IRON
     Indication: PRODUCT USED FOR UNKNOWN INDICATION
     Route: 048
  7. CEFPROZIL. [Concomitant]
     Active Substance: CEFPROZIL
     Indication: OTITIS MEDIA
     Route: 048
  8. CEFTRIAXONE. [Concomitant]
     Active Substance: CEFTRIAXONE
     Indication: OTITIS MEDIA
     Route: 042
  9. LACTAID [Concomitant]
     Active Substance: LACTASE
     Indication: PRODUCT USED FOR UNKNOWN INDICATION
     Route: 048
  10. SODIUM PHOSPHATE [Concomitant]
     Active Substance: SODIUM PHOSPHATE
     Indication: PRODUCT USED FOR UNKNOWN INDICATION
     Route: 048
  11. VITAMIN D3 [Concomitant]
     Active Substance: CHOLECALCIFEROL
     Indication: PRODUCT USED FOR UNKNOWN INDICATION
     Route: 048
  12. LANSOPRAZOLE. [Concomitant]
     Active Substance: LANSOPRAZOLE
     Indication: PRODUCT USED FOR UNKNOWN INDICATION
     Route: 048
  13. METHOTREXATE. [Suspect]
     Active Substance: METHOTREXATE
     Indication: PRODUCT USED FOR UNKNOWN INDICATION
     Route: 065
  14. PREDNISONE. [Suspect]
     Active Substance: PREDNISONE
     Route: 065
  15. CHLORHEXIDINE [Concomitant]
     Active Substance: CHLORHEXIDINE
     Indication: PRODUCT USED FOR UNKNOWN INDICATION
     Route: 061
  16. HYDROCHLOROTHIAZIDE. [Concomitant]
     Active Substance: HYDROCHLOROTHIAZIDE
     Indication: PRODUCT USED FOR UNKNOWN INDICATION
     Route: 048
  17. PREDNISONE. [Suspect]
     Active Substance: PREDNISONE
     Indication: PRODUCT USED FOR UNKNOWN INDICATION
     Route: 065
  18. PREDNISONE. [Suspect]
     Active Substance: PREDNISONE
     Route: 065
  19. ENALAPRIL [Concomitant]
     Active Substance: ENALAPRIL
     Indication: PRODUCT USED FOR UNKNOWN INDICATION
  20. POTASSIUM CITRATE. [Concomitant]
     Active Substance: POTASSIUM CITRATE
     Indication: PRODUCT USED FOR UNKNOWN INDICATION
     Route: 048
  21. PREDNISONE. [Suspect]
     Active Substance: PREDNISONE
     Route: 065
  22. PREDNISONE. [Suspect]
     Active Substance: PREDNISONE
     Route: 065
  23. ENALAPRIL [Concomitant]
     Active Substance: ENALAPRIL
  24. PREDNISONE. [Suspect]
     Active Substance: PREDNISONE
     Route: 065
  25. ATIVAN [Concomitant]
     Active Substance: LORAZEPAM
     Indication: ANXIETY
  26. CLOBAZAM. [Concomitant]
     Active Substance: CLOBAZAM
     Indication: NERVOUS SYSTEM DISORDER
     Route: 048

REACTIONS (18)
  - Blood lactate dehydrogenase increased [Recovered/Resolved]
  - Blood uric acid increased [Recovered/Resolved]
  - Lymphoma [Recovered/Resolved]
  - Otitis media acute [Recovered/Resolved]
  - Therapeutic product effect incomplete [Recovered/Resolved]
  - Hepatosplenomegaly [Recovered/Resolved]
  - Splenomegaly [Recovered/Resolved]
  - Blood alkaline phosphatase increased [Recovered/Resolved]
  - Pharyngitis [Recovered/Resolved]
  - Diarrhoea haemorrhagic [Recovered/Resolved]
  - Oropharyngeal pain [Recovered/Resolved]
  - Microcytic anaemia [Recovered/Resolved]
  - Ear infection [Recovered/Resolved]
  - Condition aggravated [Recovered/Resolved]
  - Lymphadenitis [Recovered/Resolved]
  - Iron deficiency [Recovered/Resolved]
  - C-reactive protein increased [Recovered/Resolved]
  - Clostridium difficile infection [Recovered/Resolved]
